FAERS Safety Report 16296328 (Version 1)
Quarter: 2019Q2

REPORT INFORMATION
  Report Type: Report from Study
  Country: BR (occurrence: BR)
  Receive Date: 20190510
  Receipt Date: 20190510
  Transmission Date: 20190711
  Serious: Yes (Life-Threatening)
  Sender: FDA-Public Use
  Company Number: PHHY2019BR106049

PATIENT
  Sex: Female

DRUGS (1)
  1. COSENTYX [Suspect]
     Active Substance: SECUKINUMAB
     Indication: PRODUCT USED FOR UNKNOWN INDICATION
     Dosage: UNK
     Route: 065
     Dates: start: 20180411

REACTIONS (5)
  - Depressed mood [Not Recovered/Not Resolved]
  - Wound [Not Recovered/Not Resolved]
  - Decreased interest [Unknown]
  - Feeling abnormal [Unknown]
  - Concomitant disease aggravated [Not Recovered/Not Resolved]
